FAERS Safety Report 9090879 (Version 1)
Quarter: 2013Q1

REPORT INFORMATION
  Report Type: Spontaneous
  Country: FR (occurrence: FR)
  Receive Date: 20130201
  Receipt Date: 20130201
  Transmission Date: 20140127
  Serious: Yes (Other)
  Sender: FDA-Public Use
  Company Number: FR-AMGEN-FRASP2013005697

PATIENT
  Age: 80 Year
  Sex: Male

DRUGS (7)
  1. ARANESP [Suspect]
     Indication: MYELODYSPLASTIC SYNDROME
     Dosage: UNK
     Dates: end: 20130114
  2. PLAVIX [Concomitant]
  3. PRAVASTATINE [Concomitant]
  4. KARDEGIC [Concomitant]
  5. DETENSIEL                          /00802601/ [Concomitant]
     Dosage: UNK
  6. IKOREL [Concomitant]
     Dosage: UNK
  7. TAREG [Concomitant]

REACTIONS (1)
  - Toxic skin eruption [Unknown]
